FAERS Safety Report 17791720 (Version 1)
Quarter: 2020Q2

REPORT INFORMATION
  Report Type: Spontaneous
  Country: GB (occurrence: GB)
  Receive Date: 20200515
  Receipt Date: 20200515
  Transmission Date: 20200714
  Serious: Yes (Hospitalization)
  Sender: FDA-Public Use
  Company Number: GB-ACCORD-181620

PATIENT
  Age: 4 Year
  Sex: Male
  Weight: 18 kg

DRUGS (22)
  1. CYTARABINE/CYTARABINE HYDROCHLORIDE/CYTARABINE OCFOSFATE [Suspect]
     Active Substance: CYTARABINE
     Indication: ACUTE LYMPHOCYTIC LEUKAEMIA RECURRENT
     Route: 037
     Dates: start: 20200221, end: 20200408
  2. CIPROFLOXACIN. [Concomitant]
     Active Substance: CIPROFLOXACIN
  3. TEICOPLANIN [Concomitant]
     Active Substance: TEICOPLANIN
  4. GABAPENTIN. [Concomitant]
     Active Substance: GABAPENTIN
  5. COTRIMOXAZOLE [Concomitant]
     Active Substance: SULFAMETHOXAZOLE\TRIMETHOPRIM
  6. AMPHOTERICIN B/AMPHOTERICIN B/LIPOSOME [Concomitant]
     Active Substance: AMPHOTERICIN B
  7. BLINATUMOMAB [Suspect]
     Active Substance: BLINATUMOMAB
     Indication: ACUTE LYMPHOCYTIC LEUKAEMIA RECURRENT
     Dosage: 5MCG/M2/DAY
     Route: 042
     Dates: start: 20200410, end: 20200411
  8. PARACETAMOL [Concomitant]
     Active Substance: ACETAMINOPHEN
  9. LANSOPRAZOLE. [Concomitant]
     Active Substance: LANSOPRAZOLE
  10. TAZOCIN [Concomitant]
     Active Substance: PIPERACILLIN SODIUM\TAZOBACTAM SODIUM
  11. PEGASPARGASE [Concomitant]
     Active Substance: PEGASPARGASE
  12. LEVOMEPROMAZINE [Concomitant]
     Active Substance: LEVOMEPROMAZINE
  13. MORPHINE [Concomitant]
     Active Substance: MORPHINE
  14. HYDROCORTISONE. [Concomitant]
     Active Substance: HYDROCORTISONE
  15. METHOTREXATE. [Suspect]
     Active Substance: METHOTREXATE
     Indication: ACUTE LYMPHOCYTIC LEUKAEMIA RECURRENT
     Route: 037
     Dates: start: 20200221, end: 20200408
  16. DEXAMETHASONE. [Concomitant]
     Active Substance: DEXAMETHASONE
  17. CEFTRIAXONE. [Concomitant]
     Active Substance: CEFTRIAXONE
  18. AMILORIDE [Concomitant]
     Active Substance: AMILORIDE
  19. ESOMEPRAZOLE. [Concomitant]
     Active Substance: ESOMEPRAZOLE MAGNESIUM
  20. ONDANSETRON [Concomitant]
     Active Substance: ONDANSETRON
  21. VINCRISTINE [Concomitant]
     Active Substance: VINCRISTINE
  22. VORICONAZOLE. [Concomitant]
     Active Substance: VORICONAZOLE

REACTIONS (12)
  - Hepatomegaly [Unknown]
  - Neurological decompensation [Not Recovered/Not Resolved]
  - Encephalopathy [Not Recovered/Not Resolved]
  - Dystonia [Unknown]
  - Heart rate increased [Unknown]
  - Posturing [Unknown]
  - Lethargy [Unknown]
  - Serum ferritin increased [Unknown]
  - Emotional distress [Unknown]
  - Somnolence [Unknown]
  - Hyperammonaemia [Not Recovered/Not Resolved]
  - Agitation [Unknown]

NARRATIVE: CASE EVENT DATE: 20200411
